FAERS Safety Report 24992594 (Version 1)
Quarter: 2025Q1

REPORT INFORMATION
  Report Type: Spontaneous
  Country: JP (occurrence: JP)
  Receive Date: 20250221
  Receipt Date: 20250221
  Transmission Date: 20250409
  Serious: Yes (Hospitalization)
  Sender: JOHNSON AND JOHNSON
  Company Number: JP-JNJFOC-20250147827

PATIENT
  Age: 63 Year
  Sex: Male

DRUGS (6)
  1. PALIPERIDONE PALMITATE [Suspect]
     Active Substance: PALIPERIDONE PALMITATE
     Indication: Bipolar disorder
     Route: 030
  2. PALIPERIDONE PALMITATE [Suspect]
     Active Substance: PALIPERIDONE PALMITATE
  3. PALIPERIDONE PALMITATE [Suspect]
     Active Substance: PALIPERIDONE PALMITATE
  4. PALIPERIDONE PALMITATE [Concomitant]
     Active Substance: PALIPERIDONE PALMITATE
     Indication: Bipolar disorder
     Route: 030
  5. PALIPERIDONE PALMITATE [Concomitant]
     Active Substance: PALIPERIDONE PALMITATE
     Indication: Product used for unknown indication
     Route: 030
     Dates: start: 2025
  6. RISPERDAL [Concomitant]
     Active Substance: RISPERIDONE
     Indication: Bipolar disorder
     Route: 048

REACTIONS (2)
  - COVID-19 [Recovered/Resolved]
  - Off label use [Unknown]
